FAERS Safety Report 18896462 (Version 1)
Quarter: 2021Q1

REPORT INFORMATION
  Report Type: Spontaneous
  Country: US (occurrence: US)
  Receive Date: 20210216
  Receipt Date: 20210216
  Transmission Date: 20210420
  Serious: Yes (Other)
  Sender: FDA-Public Use
  Company Number: US-SA-2021SA051251

PATIENT
  Age: 43 Year
  Sex: Male

DRUGS (2)
  1. DUPILUMAB [Suspect]
     Active Substance: DUPILUMAB
     Indication: CUTANEOUS T-CELL LYMPHOMA
     Dosage: 300 MG, QOW
     Route: 058
  2. DUPILUMAB [Suspect]
     Active Substance: DUPILUMAB
     Indication: DERMATITIS ATOPIC
     Dosage: 600 MG, 1X
     Route: 058

REACTIONS (6)
  - Weight decreased [Recovering/Resolving]
  - Lymphadenopathy [Recovering/Resolving]
  - Unintentional use for unapproved indication [Recovering/Resolving]
  - Condition aggravated [Recovering/Resolving]
  - Lymphocytic infiltration [Recovering/Resolving]
  - Cutaneous T-cell lymphoma stage IV [Recovering/Resolving]
